FAERS Safety Report 14610560 (Version 4)
Quarter: 2018Q2

REPORT INFORMATION
  Report Type: Spontaneous
  Country: DE (occurrence: DE)
  Receive Date: 20180307
  Receipt Date: 20180413
  Transmission Date: 20180711
  Serious: Yes (Hospitalization, Other)
  Sender: FDA-Public Use
  Company Number: DE-BAXTER-2018BAX006889

PATIENT
  Sex: Male

DRUGS (25)
  1. ACYCLOVIR. [Concomitant]
     Active Substance: ACYCLOVIR
     Route: 048
     Dates: start: 201711
  2. FINASTERID [Concomitant]
     Active Substance: FINASTERIDE
     Indication: ALOPECIA
     Dosage: 5 MG, QD
     Route: 048
     Dates: start: 201711
  3. ENDOXAN 1G [Suspect]
     Active Substance: CYCLOPHOSPHAMIDE
     Indication: B-CELL LYMPHOMA
     Dosage: 1540 MG, Q2WK, LAST DOSE PRIOR TO SAE:26JAN2018
     Route: 042
     Dates: start: 20171114, end: 20180126
  4. TROSPIUM CHLORIDE. [Concomitant]
     Active Substance: TROSPIUM CHLORIDE
     Indication: UROGENITAL DISORDER
     Dosage: 15 MG, TID
     Route: 048
     Dates: start: 201711
  5. PREDNISONE. [Suspect]
     Active Substance: PREDNISONE
     Indication: B-CELL LYMPHOMA
     Dosage: 500 MG, Q2WK,LAST DOSE PRIOR TO SAE:26JAN2018
     Route: 048
     Dates: start: 20171114, end: 20180130
  6. METOCLOPRAMIDE. [Concomitant]
     Active Substance: METOCLOPRAMIDE
     Route: 065
     Dates: start: 201611
  7. METAMIZOLE SODIUM [Concomitant]
     Active Substance: METAMIZOLE SODIUM
     Route: 065
     Dates: start: 201711
  8. FINASTERID [Concomitant]
     Active Substance: FINASTERIDE
     Route: 065
     Dates: start: 201711
  9. PEGFILGRASTIM [Suspect]
     Active Substance: PEGFILGRASTIM
     Indication: B-CELL LYMPHOMA
     Dosage: 6 MG, Q2WK
     Route: 058
     Dates: start: 20171118, end: 20180129
  10. PANTOPRAZOLE SODIUM. [Concomitant]
     Active Substance: PANTOPRAZOLE SODIUM
     Indication: PROPHYLAXIS AGAINST GASTROINTESTINAL ULCER
     Dosage: 40 MG, QD
     Route: 048
     Dates: start: 201711
  11. PANTOPRAZOLE SODIUM. [Concomitant]
     Active Substance: PANTOPRAZOLE SODIUM
     Route: 065
     Dates: start: 201711
  12. TROSPIUM CHLORIDE. [Concomitant]
     Active Substance: TROSPIUM CHLORIDE
     Route: 065
     Dates: start: 201711
  13. TROSPIUM CHLORIDE. [Concomitant]
     Active Substance: TROSPIUM CHLORIDE
     Route: 048
     Dates: start: 201711
  14. RITUXIMAB. [Suspect]
     Active Substance: RITUXIMAB
     Indication: B-CELL LYMPHOMA
     Dosage: 770 MG, Q2WK,LAST DOSE PRIOR TO SAE:11JAN2018
     Route: 065
     Dates: start: 20171107, end: 20180111
  15. DOXORUBICINE [Suspect]
     Active Substance: DOXORUBICIN
     Indication: B-CELL LYMPHOMA
     Dosage: 102 MG, Q2WK,LAST DOSE PRIOR TO SAE:26JAN2018
     Route: 042
     Dates: start: 20171114, end: 20180126
  16. METOCLOPRAMIDE. [Concomitant]
     Active Substance: METOCLOPRAMIDE
     Indication: NAUSEA
     Dosage: 10 MG, TID
     Route: 048
     Dates: start: 201611
  17. METAMIZOLE SODIUM [Concomitant]
     Active Substance: METAMIZOLE SODIUM
     Indication: PAIN
     Dosage: 15 DF, QID
     Route: 048
     Dates: start: 201711
  18. COLECALCIFEROL [Concomitant]
     Active Substance: CHOLECALCIFEROL
     Indication: PRODUCT USED FOR UNKNOWN INDICATION
     Dosage: 20000 IU, QWK
     Route: 048
     Dates: start: 201711
  19. COLECALCIFEROL [Concomitant]
     Active Substance: CHOLECALCIFEROL
     Route: 065
     Dates: start: 201711
  20. ACYCLOVIR. [Concomitant]
     Active Substance: ACYCLOVIR
     Route: 065
     Dates: start: 201711
  21. METAMIZOLE SODIUM [Concomitant]
     Active Substance: METAMIZOLE SODIUM
     Route: 048
     Dates: start: 201711
  22. ACYCLOVIR. [Concomitant]
     Active Substance: ACYCLOVIR
     Indication: PROPHYLAXIS
     Dosage: 400 MG, QID
     Route: 048
     Dates: start: 201711
  23. VINCRISTINE [Suspect]
     Active Substance: VINCRISTINE
     Indication: B-CELL LYMPHOMA
     Dosage: 3.34 MG, Q2WK,LAST DOSE PRIOR TO SAE:26JAN2018
     Route: 042
     Dates: start: 20171114, end: 20180126
  24. TRIMETHOPRIM SULFAMETHOXAZOLE [Concomitant]
     Active Substance: SULFAMETHOXAZOLE\TRIMETHOPRIM
     Indication: PROPHYLAXIS
     Dosage: 960 MG, UNK (SAT. + SUND., 2/D)
     Route: 048
     Dates: start: 201711
  25. TRIMETHOPRIM SULFAMETHOXAZOLE [Concomitant]
     Active Substance: SULFAMETHOXAZOLE\TRIMETHOPRIM
     Route: 065
     Dates: start: 201711

REACTIONS (3)
  - Fall [Unknown]
  - Facial bones fracture [Unknown]
  - Headache [Unknown]

NARRATIVE: CASE EVENT DATE: 20180130
